FAERS Safety Report 8520935-8 (Version None)
Quarter: 2012Q3

REPORT INFORMATION
  Report Type: 
  Country: None (occurrence: None)
  Receive Date: 20120719
  Receipt Date: 20120713
  Transmission Date: 20120928
  Serious: Yes (Hospitalization)
  Sender: FDA-Public Use
  Company Number: IT-PFIZER INC-2012170703

PATIENT
  Age: 80 Year
  Sex: Male

DRUGS (5)
  1. WARFARIN SODIUM [Interacting]
     Dosage: UNK
  2. ISOSORBIDE [Concomitant]
     Dosage: UNK
  3. TELMISARTAN [Concomitant]
     Dosage: UNK
  4. ATORVASTATIN CALCIUM [Suspect]
     Indication: HYPERLIPIDAEMIA
     Dosage: 80 MG, DAILY
  5. FUROSEMIDE [Interacting]
     Dosage: UNK

REACTIONS (2)
  - DRUG INTERACTION [None]
  - MYOPATHY [None]
